FAERS Safety Report 24128011 (Version 1)
Quarter: 2024Q3

REPORT INFORMATION
  Report Type: Report from Study
  Country: US (occurrence: US)
  Receive Date: 20240723
  Receipt Date: 20240723
  Transmission Date: 20241017
  Serious: No
  Sender: VANDA PHARMACEUTICALS
  Company Number: US-VANDA PHARMACEUTICALS, INC-2023TASUS007087

PATIENT
  Age: 8 Year
  Sex: Female
  Weight: 32.29 kg

DRUGS (1)
  1. HETLIOZ LQ [Suspect]
     Active Substance: TASIMELTEON
     Indication: Product used for unknown indication
     Dosage: 20 MILLIGRAM (5 ML), QD, BY MOUTH ONE HOUR BEFORE BEDTIME AT THE SAME TIME EVERY DAY ON AN EMPTY STO
     Route: 048

REACTIONS (3)
  - Behaviour disorder [Unknown]
  - Vomiting [Recovered/Resolved]
  - Product use issue [Unknown]

NARRATIVE: CASE EVENT DATE: 20231215
